FAERS Safety Report 5144216-8 (Version None)
Quarter: 2006Q4

REPORT INFORMATION
  Report Type: 
  Country: None (occurrence: None)
  Receive Date: 20061106
  Receipt Date: 20061031
  Transmission Date: 20070319
  Serious: Yes (Other)
  Sender: FDA-Public Use
  Company Number: GB-JNJFOC-20061100054

PATIENT
  Age: 23 Year
  Sex: Male

DRUGS (3)
  1. INFLIXIMAB [Suspect]
     Indication: CROHN'S DISEASE
  2. CYCLOSPORINE [Concomitant]
  3. TACROLIMUS [Concomitant]
     Route: 061

REACTIONS (1)
  - LEUKOCYTOCLASTIC VASCULITIS [None]
